FAERS Safety Report 7317494-4 (Version None)
Quarter: 2011Q1

REPORT INFORMATION
  Report Type: 
  Country: None (occurrence: None)
  Receive Date: 20110226
  Receipt Date: 20101110
  Transmission Date: 20110831
  Serious: No
  Sender: FDA-Public Use
  Company Number: US-ALLERGAN-1014561US

PATIENT
  Age: 38 Year
  Sex: Female

DRUGS (1)
  1. BOTOX COSMETIC [Suspect]
     Indication: SKIN WRINKLING
     Dosage: 50 UNITS, SINGLE
     Route: 030
     Dates: start: 20101112, end: 20101112

REACTIONS (13)
  - HYPOAESTHESIA [None]
  - INFLUENZA [None]
  - FLUSHING [None]
  - DYSPHAGIA [None]
  - TONGUE PRURITUS [None]
  - WEIGHT DECREASED [None]
  - INSOMNIA [None]
  - FEELING COLD [None]
  - PYREXIA [None]
  - HEAD DISCOMFORT [None]
  - RESTLESS LEGS SYNDROME [None]
  - NAUSEA [None]
  - PHOTOPHOBIA [None]
